FAERS Safety Report 6418904-7 (Version None)
Quarter: 2009Q4

REPORT INFORMATION
  Report Type: 
  Country: None (occurrence: None)
  Receive Date: 20091028
  Receipt Date: 20091028
  Transmission Date: 20100525
  Serious: Yes (Other)
  Sender: FDA-Public Use
  Company Number: None

PATIENT
  Age: 51 Year
  Sex: Female
  Weight: 68.0396 kg

DRUGS (1)
  1. RISPERDAL [Suspect]
     Indication: BIPOLAR DISORDER
     Dosage: 3 MG. AT NIGHT PO
     Route: 048
     Dates: start: 20051115, end: 20070112

REACTIONS (13)
  - ABASIA [None]
  - AMNESIA [None]
  - ATTENTION DEFICIT/HYPERACTIVITY DISORDER [None]
  - DYSPHAGIA [None]
  - HEADACHE [None]
  - HICCUPS [None]
  - MUSCLE SPASMS [None]
  - MUSCLE TWITCHING [None]
  - NOCTURIA [None]
  - PSORIASIS [None]
  - PSYCHOMOTOR SKILLS IMPAIRED [None]
  - RESTLESS LEGS SYNDROME [None]
  - SOCIAL PHOBIA [None]
